FAERS Safety Report 8225773-1 (Version None)
Quarter: 2012Q1

REPORT INFORMATION
  Report Type: 
  Country: None (occurrence: None)
  Receive Date: 20120321
  Receipt Date: 20120312
  Transmission Date: 20120608
  Serious: Yes (Hospitalization, Other)
  Sender: FDA-Public Use
  Company Number: TH-ELI_LILLY_AND_COMPANY-TH201107003911

PATIENT
  Sex: Male

DRUGS (10)
  1. HUMULIN R [Suspect]
     Indication: TYPE 2 DIABETES MELLITUS
     Dosage: 12 IU, UNK
     Route: 065
  2. NITROGLYCERIN [Concomitant]
     Dosage: UNK
  3. DIURETICS [Concomitant]
     Dosage: UNK
  4. ASPIRIN [Concomitant]
     Dosage: UNK
  5. ALDOSTERONE ANTAGONISTS [Concomitant]
     Dosage: UNK
  6. HUMULIN N [Suspect]
     Indication: TYPE 2 DIABETES MELLITUS
     Dosage: 30 IU, UNK
     Route: 065
  7. SAXAGLIPTIN [Concomitant]
     Indication: TYPE 2 DIABETES MELLITUS
     Dosage: UNK
     Dates: start: 20110309, end: 20110825
  8. PLACEBO [Concomitant]
  9. HMG COA REDUCTASE INHIBITORS [Concomitant]
     Dosage: UNK
  10. BETA BLOCKING AGENTS [Concomitant]
     Dosage: UNK

REACTIONS (5)
  - ACUTE MYOCARDIAL INFARCTION [None]
  - ANGINA UNSTABLE [None]
  - ISCHAEMIC CARDIOMYOPATHY [None]
  - CONGESTIVE CARDIOMYOPATHY [None]
  - HYPOGLYCAEMIA [None]
